FAERS Safety Report 15143895 (Version 4)
Quarter: 2018Q3

REPORT INFORMATION
  Report Type: Spontaneous
  Country: US (occurrence: US)
  Receive Date: 20180713
  Receipt Date: 20180905
  Transmission Date: 20181010
  Serious: No
  Sender: FDA-Public Use
  Company Number: US-SHIRE-US201824973

PATIENT
  Age: 74 Year
  Sex: Female
  Weight: 45.35 kg

DRUGS (2)
  1. XIIDRA [Suspect]
     Active Substance: LIFITEGRAST
     Indication: DRY EYE
     Dosage: UNK UNK, 2X/DAY:BID
     Route: 047
     Dates: start: 20180507, end: 2018
  2. XIIDRA [Suspect]
     Active Substance: LIFITEGRAST
     Dosage: UNK
     Route: 047

REACTIONS (20)
  - Condition aggravated [Unknown]
  - Instillation site reaction [Recovered/Resolved]
  - Instillation site pruritus [Recovered/Resolved]
  - Instillation site erythema [Recovered/Resolved]
  - Instillation site irritation [Recovered/Resolved]
  - Dry eye [Recovered/Resolved]
  - Eyelid margin crusting [Unknown]
  - Thirst [Unknown]
  - Product quality issue [Unknown]
  - Memory impairment [Unknown]
  - Instillation site pain [Recovered/Resolved]
  - Instillation site lacrimation [Recovered/Resolved]
  - Ill-defined disorder [Unknown]
  - Instillation site infection [Unknown]
  - Feeling abnormal [Recovered/Resolved]
  - Instillation site pain [Unknown]
  - Inappropriate schedule of drug administration [Recovered/Resolved]
  - Instillation site pustules [Unknown]
  - Reading disorder [Unknown]
  - Conjunctivitis [Unknown]

NARRATIVE: CASE EVENT DATE: 201805
